FAERS Safety Report 14583365 (Version 3)
Quarter: 2018Q2

REPORT INFORMATION
  Report Type: Spontaneous
  Country: JP (occurrence: JP)
  Receive Date: 20180228
  Receipt Date: 20180511
  Transmission Date: 20180711
  Serious: No
  Sender: FDA-Public Use
  Company Number: JP-BAUSCH-BL-2018-002420

PATIENT
  Sex: Female

DRUGS (7)
  1. LUMICEF [Suspect]
     Active Substance: BRODALUMAB
     Indication: PSORIATIC ARTHROPATHY
     Route: 058
     Dates: start: 20171226, end: 20171226
  2. LUMICEF [Suspect]
     Active Substance: BRODALUMAB
     Route: 058
     Dates: start: 20180104, end: 20180104
  3. LUMICEF [Suspect]
     Active Substance: BRODALUMAB
     Route: 058
     Dates: start: 20180122, end: 20180122
  4. LUMICEF [Suspect]
     Active Substance: BRODALUMAB
     Route: 058
     Dates: start: 20180206, end: 20180206
  5. AZULFIDINE EN-TABS [Concomitant]
     Active Substance: SULFASALAZINE
     Indication: OSTEOARTHRITIS
     Dosage: 500 MG 2 TABLETS/DAY
     Route: 048
     Dates: start: 201710
  6. METHOTREXATE. [Concomitant]
     Active Substance: METHOTREXATE
     Indication: OSTEOARTHRITIS
     Route: 048
     Dates: start: 201710
  7. METHOTREXATE. [Concomitant]
     Active Substance: METHOTREXATE
     Route: 048

REACTIONS (3)
  - Viral infection [Recovered/Resolved]
  - Gastroenteritis [Recovered/Resolved]
  - Influenza [Recovered/Resolved]

NARRATIVE: CASE EVENT DATE: 20180105
